FAERS Safety Report 7657741-2 (Version None)
Quarter: 2011Q3

REPORT INFORMATION
  Report Type: 
  Country: None (occurrence: None)
  Receive Date: 20110804
  Receipt Date: 20110706
  Transmission Date: 20111222
  Serious: Yes (Other)
  Sender: FDA-Public Use
  Company Number: US-BAYER-2011-059306

PATIENT
  Age: 41 Year
  Sex: Female
  Weight: 66 kg

DRUGS (1)
  1. ALEVE (CAPLET) [Suspect]
     Indication: ANALGESIC THERAPY
     Dosage: COUNT SIZE 24S
     Route: 048
     Dates: start: 20110701, end: 20110701

REACTIONS (3)
  - FAECES DISCOLOURED [None]
  - HAEMATEMESIS [None]
  - VOMITING [None]
